FAERS Safety Report 23546689 (Version 1)
Quarter: 2024Q1

REPORT INFORMATION
  Report Type: Spontaneous
  Country: US (occurrence: US)
  Receive Date: 20240221
  Receipt Date: 20240221
  Transmission Date: 20240409
  Serious: Yes (Other)
  Sender: FDA-Public Use
  Company Number: US-DRL-USA-LIT/USA/24/0002747

PATIENT
  Age: 15 Year
  Sex: Male

DRUGS (5)
  1. CYCLOSPORINE [Suspect]
     Active Substance: CYCLOSPORINE
     Indication: Injection site reaction
  2. DAPSONE [Suspect]
     Active Substance: DAPSONE
     Indication: Injection site reaction
  3. IMMUNE GLOBULIN NOS [Suspect]
     Active Substance: IMMUNE GLOBULIN NOS
     Indication: Injection site reaction
  4. DUPILUMAB [Suspect]
     Active Substance: DUPILUMAB
     Indication: Injection site reaction
  5. DEXAMETHASONE [Concomitant]
     Active Substance: DEXAMETHASONE
     Indication: Injection site reaction

REACTIONS (4)
  - Meningitis aseptic [Unknown]
  - Malaise [Unknown]
  - Vomiting [Unknown]
  - Drug ineffective [Unknown]
